FAERS Safety Report 4884095-7 (Version None)
Quarter: 2006Q1

REPORT INFORMATION
  Report Type: 
  Country: None (occurrence: None)
  Receive Date: 20060118
  Receipt Date: 20050609
  Transmission Date: 20060701
  Serious: Yes (Hospitalization)
  Sender: FDA-Public Use
  Company Number: US-MERCK-0506USA01494

PATIENT
  Age: 75 Year
  Sex: Female
  Weight: 64 kg

DRUGS (12)
  1. VIOXX [Suspect]
     Indication: KNEE ARTHROPLASTY
     Route: 048
     Dates: start: 20020101, end: 20040930
  2. VIOXX [Suspect]
     Indication: ARTHRALGIA
     Route: 048
     Dates: start: 20020101, end: 20040930
  3. FOSAMAX [Concomitant]
     Route: 065
  4. LEVOXYL [Concomitant]
     Route: 065
  5. CALCIUM (UNSPECIFIED) [Concomitant]
     Route: 065
  6. VITAMIN D (UNSPECIFIED) [Concomitant]
     Route: 065
  7. COUMADIN [Concomitant]
     Route: 065
  8. PERCOCET [Concomitant]
     Route: 065
  9. VITAMINS (UNSPECIFIED) [Concomitant]
     Route: 065
  10. ALEVE [Concomitant]
     Route: 065
  11. HYDROCODONE BITARTRATE + ACETAMINOPHEN [Concomitant]
     Route: 065
  12. TYLENOL (CAPLET) [Concomitant]
     Route: 065

REACTIONS (14)
  - CARDIAC MURMUR [None]
  - DIVERTICULUM [None]
  - FALL [None]
  - HAEMORRHOIDS [None]
  - HYPERTENSION [None]
  - INSOMNIA [None]
  - IRRITABLE BOWEL SYNDROME [None]
  - JAW FRACTURE [None]
  - MULTIPLE FRACTURES [None]
  - OVERDOSE [None]
  - PAIN [None]
  - PULMONARY EMBOLISM [None]
  - SPINAL FRACTURE [None]
  - THROMBOSIS [None]
